FAERS Safety Report 5168263-5 (Version None)
Quarter: 2006Q4

REPORT INFORMATION
  Report Type: 
  Country: None (occurrence: None)
  Receive Date: 20061201
  Receipt Date: 20061122
  Transmission Date: 20070319
  Serious: Yes (Other)
  Sender: FDA-Public Use
  Company Number: 066-20785-06110724

PATIENT
  Age: 56 Year
  Sex: Male

DRUGS (2)
  1. THALIDOMIDE [Suspect]
     Indication: LICHEN PLANUS
     Dosage: X 2 WEEKS AND THEN 25 MG/DAY X 1 YR, ORAL; SEE IMAGE
     Route: 048
  2. TACROLIMUS [Concomitant]

REACTIONS (5)
  - BURNING SENSATION [None]
  - HEPATIC NEOPLASM MALIGNANT [None]
  - HYPOAESTHESIA [None]
  - MUSCLE SPASMS [None]
  - MUSCULAR WEAKNESS [None]
